FAERS Safety Report 10474076 (Version 1)
Quarter: 2014Q3

REPORT INFORMATION
  Report Type: Report from Study
  Country: US (occurrence: US)
  Receive Date: 20140924
  Receipt Date: 20140924
  Transmission Date: 20150326
  Serious: Yes (Hospitalization, Other)
  Sender: FDA-Public Use
  Company Number: US-GILEAD-2014-0116244

PATIENT
  Age: 52 Year
  Sex: Female

DRUGS (7)
  1. SOFOSBUVIR [Suspect]
     Active Substance: SOFOSBUVIR
     Indication: CHRONIC HEPATITIS C
     Dosage: 400 MG, UNK
     Route: 065
     Dates: start: 20140116
  2. PROGRAF [Concomitant]
     Active Substance: TACROLIMUS\TACROLIMUS ANHYDROUS
  3. VALCYTE [Concomitant]
     Active Substance: VALGANCICLOVIR HYDROCHLORIDE
  4. RIBAVIRIN. [Concomitant]
     Active Substance: RIBAVIRIN
  5. PREDNISONE. [Concomitant]
     Active Substance: PREDNISONE
  6. DIFLUCAN [Concomitant]
     Active Substance: FLUCONAZOLE
  7. MYFORTIC [Concomitant]
     Active Substance: MYCOPHENOLATE SODIUM

REACTIONS (2)
  - Hepatic steatosis [Unknown]
  - Liver transplant [Unknown]

NARRATIVE: CASE EVENT DATE: 20140710
